FAERS Safety Report 4457483-0 (Version None)
Quarter: 2004Q3

REPORT INFORMATION
  Report Type: 
  Country: None (occurrence: None)
  Receive Date: 20040922
  Receipt Date: 20040908
  Transmission Date: 20050211
  Serious: Yes (Hospitalization)
  Sender: FDA-Public Use
  Company Number: 208921

PATIENT
  Age: 52 Year
  Sex: Male
  Weight: 63 kg

DRUGS (11)
  1. AVASTIN [Suspect]
     Indication: HEPATIC NEOPLASM MALIGNANT
     Dosage: 10 MG/KG, Q2W, INTRAVENOUS
     Route: 042
     Dates: start: 20040901
  2. LOVENOX [Concomitant]
  3. OXYCODONE (OXYCODONE) [Concomitant]
  4. TOPROL (METOPROLOL SUCCINATE) [Concomitant]
  5. ZESTRIL [Concomitant]
  6. PLAVIX (CLOPIDROGREL BISULFATE) [Concomitant]
  7. LIPITOR [Concomitant]
  8. HYOSCYAMINE (HYOSCYAMINE) [Concomitant]
  9. COMPAZINE [Concomitant]
  10. LEXAPRO [Concomitant]
  11. ATIVAN (LORAZEPAZAM) [Concomitant]

REACTIONS (2)
  - METASTASES TO GASTROINTESTINAL TRACT [None]
  - SMALL INTESTINAL PERFORATION [None]
